FAERS Safety Report 9198575 (Version 2)
Quarter: 2013Q2

REPORT INFORMATION
  Report Type: Spontaneous
  Country: US (occurrence: US)
  Receive Date: 20130329
  Receipt Date: 20130516
  Transmission Date: 20140414
  Serious: Yes (Disabling, Other)
  Sender: FDA-Public Use
  Company Number: US-ALLERGAN-1213201US

PATIENT
  Age: 74 Year
  Sex: Female
  Weight: 63.9 kg

DRUGS (6)
  1. ZYMAXID [Suspect]
     Indication: POST PROCEDURAL COMPLICATION
     Dosage: 1 GTT, QD
     Route: 047
     Dates: start: 20120803, end: 20120903
  2. MVI [Concomitant]
     Indication: SUPPLEMENTATION THERAPY
     Dosage: 1 DF, QD
     Route: 048
  3. PREMARIN [Concomitant]
     Indication: HYSTERECTOMY
     Dosage: .0625 UNKNOWN
     Route: 048
     Dates: start: 1976
  4. ZYRTEC [Concomitant]
     Indication: HYPERSENSITIVITY
     Dosage: UNK
  5. PREDNISOLONE [Concomitant]
     Indication: POSTOPERATIVE CARE
     Dosage: UNK
  6. BROMDAY [Concomitant]
     Indication: PRODUCT USED FOR UNKNOWN INDICATION
     Dosage: UNK

REACTIONS (18)
  - Cognitive disorder [Not Recovered/Not Resolved]
  - Cerebrovascular accident [Not Recovered/Not Resolved]
  - Vertigo [Not Recovered/Not Resolved]
  - Dizziness [Not Recovered/Not Resolved]
  - Asthenia [Not Recovered/Not Resolved]
  - Gait disturbance [Not Recovered/Not Resolved]
  - Feeling abnormal [Recovered/Resolved]
  - Headache [Not Recovered/Not Resolved]
  - Fatigue [Not Recovered/Not Resolved]
  - Myalgia [Not Recovered/Not Resolved]
  - Arthralgia [Not Recovered/Not Resolved]
  - Pain in extremity [Not Recovered/Not Resolved]
  - Rash [Not Recovered/Not Resolved]
  - Skin atrophy [Not Recovered/Not Resolved]
  - Memory impairment [Not Recovered/Not Resolved]
  - Migraine [Recovering/Resolving]
  - Sensory disturbance [Not Recovered/Not Resolved]
  - Vomiting [Not Recovered/Not Resolved]
